FAERS Safety Report 6256695-3 (Version None)
Quarter: 2009Q2

REPORT INFORMATION
  Report Type: 
  Country: None (occurrence: None)
  Receive Date: 20090629
  Receipt Date: 20090629
  Transmission Date: 20091009
  Serious: Yes (Other)
  Sender: FDA-Public Use
  Company Number: None

PATIENT
  Age: 52 Year
  Sex: Female
  Weight: 70.3075 kg

DRUGS (1)
  1. PROPOFOL [Suspect]
     Indication: SEDATIVE THERAPY
     Dosage: 420MG TOTAL FOR CASE IV 0921AM TO 0954
     Route: 042

REACTIONS (3)
  - CHILLS [None]
  - POST PROCEDURAL COMPLICATION [None]
  - TREMOR [None]
